FAERS Safety Report 25903022 (Version 1)
Quarter: 2025Q4

REPORT INFORMATION
  Report Type: Spontaneous
  Country: US (occurrence: None)
  Receive Date: 20251009
  Receipt Date: 20251009
  Transmission Date: 20260118
  Serious: Yes (Other)
  Sender: FDA-CTU
  Company Number: None

PATIENT
  Age: 39 Year
  Sex: Female

DRUGS (3)
  1. CYANOCOBALAMIN\NALTREXONE\TOPIRAMATE [Suspect]
     Active Substance: CYANOCOBALAMIN\NALTREXONE\TOPIRAMATE
     Indication: Weight decreased
     Dosage: FREQUENCY : TWICE A DAY;?4 MG/44MG/1 MG MG/MG -MILLIGRAMS/MILLIGRAMS
     Route: 048
     Dates: start: 20250823, end: 20250916
  2. BUPROPION [Suspect]
     Active Substance: BUPROPION
     Dates: start: 20250823, end: 20250916
  3. ONDANSETRON [Suspect]
     Active Substance: ONDANSETRON

REACTIONS (1)
  - Urticaria [None]

NARRATIVE: CASE EVENT DATE: 20250916
